FAERS Safety Report 16838164 (Version 1)
Quarter: 2019Q3

REPORT INFORMATION
  Report Type: Spontaneous
  Country: US (occurrence: US)
  Receive Date: 20190923
  Receipt Date: 20190923
  Transmission Date: 20191005
  Serious: No
  Sender: FDA-Public Use
  Company Number: US-FRESENIUS MEDICAL CARE RENAL THERAPIES GROUP-FMC-1909-001214

PATIENT
  Sex: Male

DRUGS (1)
  1. DELFLEX [Suspect]
     Active Substance: CALCIUM CHLORIDE\DEXTROSE\MAGNESIUM CHLORIDE\SODIUM CHLORIDE\SODIUM LACTATE
     Indication: END STAGE RENAL DISEASE
     Dosage: TOTAL VOLUME (TV) = 14,000ML; FILL VOLUME (FV)= 2,500ML FOR 5 CYCLES; LAST FILL VOLUME (LFV) FOR CYC
     Route: 033
     Dates: start: 20190906

REACTIONS (1)
  - Abdominal distension [Unknown]
